FAERS Safety Report 14641924 (Version 1)
Quarter: 2018Q1

REPORT INFORMATION
  Report Type: Spontaneous
  Country: FR (occurrence: FR)
  Receive Date: 20180315
  Receipt Date: 20180315
  Transmission Date: 20180509
  Serious: Yes (Hospitalization)
  Sender: FDA-Public Use
  Company Number: FR-SA-2018SA065418

PATIENT
  Age: 42 Year
  Sex: Male
  Weight: 92 kg

DRUGS (15)
  1. ZOPICLONE [Suspect]
     Active Substance: ZOPICLONE
     Route: 065
     Dates: start: 20170608, end: 20170608
  2. ASPIRINE [Suspect]
     Active Substance: ASPIRIN
     Route: 048
     Dates: end: 20170608
  3. ARAVA [Suspect]
     Active Substance: LEFLUNOMIDE
     Indication: PALINDROMIC RHEUMATISM
     Route: 048
     Dates: end: 20170608
  4. THERALENE [Suspect]
     Active Substance: TRIMEPRAZINE
     Route: 048
     Dates: end: 20170608
  5. LOVENOX [Suspect]
     Active Substance: ENOXAPARIN SODIUM
     Indication: VENOUS THROMBOSIS
     Route: 058
     Dates: start: 20170608, end: 20170615
  6. VENLAFAXINE [Suspect]
     Active Substance: VENLAFAXINE HYDROCHLORIDE
     Indication: DEPRESSION
     Route: 048
     Dates: end: 20170608
  7. PARKINANE [Suspect]
     Active Substance: TRIHEXYPHENIDYL HYDROCHLORIDE
     Route: 065
     Dates: end: 20170808
  8. ABILIFY [Suspect]
     Active Substance: ARIPIPRAZOLE
     Indication: SCHIZOPHRENIA
     Route: 048
     Dates: end: 20170608
  9. ALPRAZOLAM. [Suspect]
     Active Substance: ALPRAZOLAM
     Route: 048
     Dates: start: 20170608, end: 20170608
  10. SERESTA [Suspect]
     Active Substance: OXAZEPAM
     Route: 048
  11. AMOXICILLIN/CLAVULANIC ACID [Suspect]
     Active Substance: AMOXICILLIN\CLAVULANIC ACID
     Indication: LUNG INFECTION
     Route: 042
     Dates: start: 20170608, end: 20170615
  12. PROMETHAZINE [Suspect]
     Active Substance: PROMETHAZINE\PROMETHAZINE HYDROCHLORIDE
     Route: 048
     Dates: start: 20170608, end: 20170608
  13. TRANXENE [Suspect]
     Active Substance: CLORAZEPATE DIPOTASSIUM
     Route: 048
  14. LOXAPAC [Suspect]
     Active Substance: LOXAPINE
     Indication: SCHIZOPHRENIA
     Route: 048
     Dates: end: 20170608
  15. CISATRACURIUM. [Suspect]
     Active Substance: CISATRACURIUM
     Route: 042
     Dates: start: 20170608, end: 20170610

REACTIONS (4)
  - Blood triglycerides increased [Recovering/Resolving]
  - Hepatitis acute [Recovered/Resolved]
  - Blood cholesterol increased [Recovered/Resolved]
  - Lipase increased [Recovered/Resolved]

NARRATIVE: CASE EVENT DATE: 20170616
